FAERS Safety Report 6133210-6 (Version None)
Quarter: 2009Q1

REPORT INFORMATION
  Report Type: 
  Country: None (occurrence: None)
  Receive Date: 20090324
  Receipt Date: 20090324
  Transmission Date: 20090719
  Serious: No
  Sender: FDA-Public Use
  Company Number: None

PATIENT
  Age: 61 Year
  Sex: Female
  Weight: 72.5755 kg

DRUGS (2)
  1. LEVAQUIN [Suspect]
     Indication: SINUSITIS
     Dosage: 500 MG TABLET MCN 1 PER DAY PO
     Route: 048
     Dates: start: 20090201, end: 20090315
  2. LEVAQUIN [Suspect]
     Indication: UPPER RESPIRATORY TRACT INFECTION
     Dosage: 500 MG TABLET MCN 1 PER DAY PO
     Route: 048
     Dates: start: 20090201, end: 20090315

REACTIONS (3)
  - ARTHROPATHY [None]
  - LIGAMENT DISORDER [None]
  - PAIN [None]
